FAERS Safety Report 6717809-1 (Version None)
Quarter: 2010Q2

REPORT INFORMATION
  Report Type: 
  Country: None (occurrence: None)
  Receive Date: 20100503
  Receipt Date: 20100420
  Transmission Date: 20101027
  Serious: Yes (Other)
  Sender: FDA-Public Use
  Company Number: 7002410

PATIENT
  Age: 40 Year
  Sex: Female

DRUGS (2)
  1. REBIF [Suspect]
     Indication: DRUG USE FOR UNKNOWN INDICATION
     Dosage: SUBCUTANEOUS
     Route: 058
     Dates: start: 20061219
  2. AMANTADINE HCL [Suspect]
     Dates: end: 20100401

REACTIONS (4)
  - CRYOGLOBULINS PRESENT [None]
  - LIVEDO RETICULARIS [None]
  - SKIN DISCOLOURATION [None]
  - WHITE BLOOD CELL DISORDER [None]
